FAERS Safety Report 8861460 (Version 1)
Quarter: 2012Q4

REPORT INFORMATION
  Report Type: Spontaneous
  Country: US (occurrence: None)
  Receive Date: 20121024
  Receipt Date: 20121024
  Transmission Date: 20130627
  Serious: Yes (Life-Threatening)
  Sender: FDA-Public Use
  Company Number: 100721-015920

PATIENT
  Age: 53 Year
  Sex: Female

DRUGS (1)
  1. RECLAIM ANTI-AGING DAY CREAM SPF 15 % [Suspect]
     Dosage: once dermal
     Dates: start: 20091214

REACTIONS (3)
  - Eye swelling [None]
  - Dyspnoea [None]
  - Apparent life threatening event [None]
